FAERS Safety Report 5301817-1 (Version None)
Quarter: 2007Q2

REPORT INFORMATION
  Report Type: 
  Country: None (occurrence: None)
  Receive Date: 20070419
  Receipt Date: 20070416
  Transmission Date: 20071010
  Serious: Yes (Death, Other)
  Sender: FDA-Public Use
  Company Number: PHEH2007US05417

PATIENT
  Age: 91 Year
  Sex: Male

DRUGS (1)
  1. ZELNORM [Suspect]

REACTIONS (4)
  - CHOLELITHIASIS [None]
  - DEEP VEIN THROMBOSIS [None]
  - SURGERY [None]
  - THROMBOSIS [None]
